FAERS Safety Report 5299691-5 (Version None)
Quarter: 2007Q2

REPORT INFORMATION
  Report Type: 
  Country: None (occurrence: None)
  Receive Date: 20070410
  Receipt Date: 20070326
  Transmission Date: 20071010
  Serious: Yes (Other)
  Sender: FDA-Public Use
  Company Number: 16183

PATIENT
  Age: 68 Year
  Sex: Male
  Weight: 78 kg

DRUGS (9)
  1. AMIODARONE HCL [Suspect]
     Dosage: 200 MG DAILY
  2. DIGOXIN [Suspect]
     Dosage: 0.125 MG DAILY
  3. FUROSEMIDE [Suspect]
     Dosage: 80 MG BID
  4. ASPIRIN [Suspect]
     Dosage: 80 MG BID
  5. ACIPIMOX [Suspect]
     Dosage: 250 MG BID
  6. BISOPRODOL FUMARATE [Suspect]
     Dosage: 7.5 MG DAILY
  7. EZETROL. MFR: NOT SPECIFIED [Suspect]
     Dosage: 10 MG DAILY
  8. LANSOPRAZOLE [Suspect]
     Dosage: 30 MG DAILY
  9. PERINDOPRIL [Suspect]
     Dosage: 2 MG DAILY

REACTIONS (10)
  - ATRIAL FIBRILLATION [None]
  - CARDIAC MURMUR [None]
  - DIZZINESS [None]
  - DYSPNOEA [None]
  - FATIGUE [None]
  - FEELING ABNORMAL [None]
  - OEDEMA PERIPHERAL [None]
  - PARAESTHESIA [None]
  - VENTRICULAR DYSFUNCTION [None]
  - VENTRICULAR TACHYCARDIA [None]
